FAERS Safety Report 7428253-6 (Version None)
Quarter: 2011Q2

REPORT INFORMATION
  Report Type: 
  Country: None (occurrence: None)
  Receive Date: 20110421
  Receipt Date: 20110413
  Transmission Date: 20111010
  Serious: No
  Sender: FDA-Public Use
  Company Number: US-BIOGENIDEC-2011BI014337

PATIENT
  Sex: Female

DRUGS (1)
  1. TYSABRI [Suspect]
     Indication: MULTIPLE SCLEROSIS
     Route: 042
     Dates: start: 20090430

REACTIONS (10)
  - PNEUMONIA [None]
  - DEPRESSIVE SYMPTOM [None]
  - URINARY TRACT INFECTION [None]
  - HORDEOLUM [None]
  - INFLUENZA LIKE ILLNESS [None]
  - INFECTION [None]
  - WHITE BLOOD CELL COUNT INCREASED [None]
  - VISUAL IMPAIRMENT [None]
  - IMMUNE SYSTEM DISORDER [None]
  - INFLUENZA [None]
